FAERS Safety Report 19068655 (Version 1)
Quarter: 2021Q1

REPORT INFORMATION
  Report Type: Spontaneous
  Country: US (occurrence: US)
  Receive Date: 20210329
  Receipt Date: 20210329
  Transmission Date: 20210420
  Serious: Yes (Life-Threatening, Hospitalization)
  Sender: FDA-Public Use
  Company Number: US-TEVA-2020-US-1242228

PATIENT
  Age: 77 Year
  Sex: Male

DRUGS (1)
  1. METHOTREXATE. [Suspect]
     Active Substance: METHOTREXATE
     Indication: RHEUMATOID ARTHRITIS
     Dosage: TWO DOSES
     Route: 048

REACTIONS (4)
  - Hepatotoxicity [Unknown]
  - Pancytopenia [Recovered/Resolved]
  - Toxicity to various agents [Recovering/Resolving]
  - Stomatitis [Recovered/Resolved]
